FAERS Safety Report 5283843-4 (Version None)
Quarter: 2007Q2

REPORT INFORMATION
  Report Type: 
  Country: None (occurrence: None)
  Receive Date: 20070402
  Receipt Date: 20070323
  Transmission Date: 20071010
  Serious: Yes (Death, Hospitalization)
  Sender: FDA-Public Use
  Company Number: GR-ABBOTT-07P-066-0362943-00

PATIENT
  Age: 75 Year
  Sex: Female

DRUGS (5)
  1. TARKA [Suspect]
     Indication: HYPERTENSION
     Route: 048
     Dates: start: 20060202, end: 20060401
  2. AMLODIPINE BESYLATE [Concomitant]
     Indication: HYPERTENSION
     Route: 048
     Dates: start: 20060307
  3. NEBIVOLOL HYDROCHLORIDE [Concomitant]
     Indication: HYPERTENSION
     Dates: start: 20060307
  4. PREDNISOLONE [Concomitant]
     Indication: SYSTEMIC LUPUS ERYTHEMATOSUS
  5. HYDROXYCHLOROQUINE PHOSPHATE [Concomitant]
     Indication: SYSTEMIC LUPUS ERYTHEMATOSUS

REACTIONS (3)
  - LOWER RESPIRATORY TRACT INFECTION [None]
  - RENAL FAILURE ACUTE [None]
  - RENAL IMPAIRMENT [None]
